FAERS Safety Report 4438450-X (Version None)
Quarter: 2004Q3

REPORT INFORMATION
  Report Type: 
  Country: None (occurrence: None)
  Receive Date: 20040728
  Receipt Date: 20040324
  Transmission Date: 20050211
  Serious: No
  Sender: FDA-Public Use
  Company Number: USA040363019

PATIENT
  Age: 26 Year
  Sex: Male

DRUGS (1)
  1. STRATTERA [Suspect]
     Indication: ATTENTION DEFICIT/HYPERACTIVITY DISORDER
     Dosage: 80 MG DAY
     Dates: start: 20040301

REACTIONS (6)
  - ABNORMAL DREAMS [None]
  - DYSPHAGIA [None]
  - HEADACHE [None]
  - INITIAL INSOMNIA [None]
  - PRURITUS [None]
  - URTICARIA [None]
